FAERS Safety Report 10980493 (Version 2)
Quarter: 2015Q2

REPORT INFORMATION
  Report Type: Spontaneous
  Country: US (occurrence: US)
  Receive Date: 20150402
  Receipt Date: 20150525
  Transmission Date: 20150821
  Serious: No
  Sender: FDA-Public Use
  Company Number: US-JNJFOC-20140610290

PATIENT
  Age: 58 Year
  Sex: Male
  Weight: 85.73 kg

DRUGS (1)
  1. LOMOTIL [Suspect]
     Active Substance: ATROPINE SULFATE\DIPHENOXYLATE HYDROCHLORIDE
     Indication: CROHN^S DISEASE
     Route: 065

REACTIONS (3)
  - Aggression [Unknown]
  - Feeling abnormal [Unknown]
  - Product use issue [Unknown]
